FAERS Safety Report 9339504 (Version 1)
Quarter: 2013Q2

REPORT INFORMATION
  Report Type: Other
  Country: GB (occurrence: GB)
  Receive Date: 20130610
  Receipt Date: 20130610
  Transmission Date: 20140414
  Serious: Yes (Other)
  Sender: FDA-Public Use
  Company Number: GB-WATSON-2013-09829

PATIENT
  Age: 18 Year
  Sex: Female
  Weight: 45 kg

DRUGS (1)
  1. SERTRALINE HYDROCHLORIDE (UNKNOWN) [Suspect]
     Indication: ANOREXIA NERVOSA
     Dosage: 50 MG, DAILY
     Route: 048
     Dates: start: 20130312, end: 20130425

REACTIONS (2)
  - Aplastic anaemia [Recovered/Resolved]
  - Neutropenia [Unknown]
